FAERS Safety Report 5291487-3 (Version None)
Quarter: 2007Q2

REPORT INFORMATION
  Report Type: 
  Country: None (occurrence: None)
  Receive Date: 20070403
  Receipt Date: 20070319
  Transmission Date: 20071010
  Serious: Yes (Hospitalization)
  Sender: FDA-Public Use
  Company Number: 2007SP001000

PATIENT
  Sex: Male

DRUGS (1)
  1. XOPENEX [Suspect]
     Dosage: INHALATION

REACTIONS (2)
  - BLOOD PRESSURE INCREASED [None]
  - TOTAL LUNG CAPACITY DECREASED [None]
